FAERS Safety Report 11486201 (Version 2)
Quarter: 2016Q3

REPORT INFORMATION
  Report Type: Report from Study
  Country: US (occurrence: US)
  Receive Date: 20150910
  Receipt Date: 20160817
  Transmission Date: 20161109
  Serious: Yes (Death, Hospitalization, Other)
  Sender: FDA-Public Use
  Company Number: US-AMGEN-USACT2015091265

PATIENT
  Age: 46 Year
  Sex: Male
  Weight: 72 kg

DRUGS (25)
  1. CELEBREX [Concomitant]
     Active Substance: CELECOXIB
     Dosage: 200 MG, UNK
     Route: 048
  2. LANSOPRAZOLE. [Concomitant]
     Active Substance: LANSOPRAZOLE
     Dosage: 30 MG, UNK
     Route: 048
  3. ROMIPLOSTIM [Suspect]
     Active Substance: ROMIPLOSTIM
     Indication: THROMBOCYTOPENIA
     Dosage: 100 MUG, QWK
     Route: 058
     Dates: start: 20150817
  4. PREVACID [Concomitant]
     Active Substance: LANSOPRAZOLE
     Dosage: 30 MG, UNK
     Route: 048
  5. ACTIGALL [Concomitant]
     Active Substance: URSODIOL
     Dosage: 300 MG, UNK
     Route: 048
  6. DOCUSATE SODIUM. [Concomitant]
     Active Substance: DOCUSATE SODIUM
     Dosage: 100 MG, UNK
     Route: 048
  7. OXALIPLATIN. [Concomitant]
     Active Substance: OXALIPLATIN
  8. HYDROMORPHONE [Concomitant]
     Active Substance: HYDROMORPHONE
     Dosage: 4 MG, UNK
     Route: 048
  9. SODIUM BICARBONATE. [Concomitant]
     Active Substance: SODIUM BICARBONATE
     Dosage: 650 MG, UNK
     Route: 048
  10. RIFAMPIN. [Concomitant]
     Active Substance: RIFAMPIN
     Dosage: 300 MG, UNK
     Route: 048
  11. ZOFRAN [Concomitant]
     Active Substance: ONDANSETRON HYDROCHLORIDE
     Indication: NAUSEA
     Dosage: 4 MG, Q6H PRN
  12. DECADRON [Concomitant]
     Active Substance: DEXAMETHASONE
     Dosage: 6 MG, Q12H
  13. ENOXAPARIN [Concomitant]
     Active Substance: ENOXAPARIN
     Dosage: 80 MG, BID
     Route: 058
  14. RIFAXIMIN [Concomitant]
     Active Substance: RIFAXIMIN
     Dosage: 550 MG, UNK
     Route: 048
  15. FLUOROURACIL. [Concomitant]
     Active Substance: FLUOROURACIL
     Dosage: UNK
  16. ALDACTONE [Concomitant]
     Active Substance: SPIRONOLACTONE
     Dosage: 50 MG, UNK
     Route: 048
  17. BACTRIM DS [Concomitant]
     Active Substance: SULFAMETHOXAZOLE\TRIMETHOPRIM
     Dosage: 800MG-160MG
     Route: 048
  18. URSODIOL. [Concomitant]
     Active Substance: URSODIOL
     Dosage: 300 MG, UNK
     Route: 048
  19. SPIRONOLACTONE. [Concomitant]
     Active Substance: SPIRONOLACTONE
     Dosage: 500 MG, UNK
     Route: 048
  20. SENNA [Concomitant]
     Active Substance: SENNA LEAF\SENNOSIDES\SENNOSIDES A AND B
     Dosage: 8.6 MG, UNK
     Route: 048
  21. CALCIUM FOLINATE [Concomitant]
     Active Substance: LEUCOVORIN CALCIUM
  22. LOVENOX [Concomitant]
     Active Substance: ENOXAPARIN SODIUM
     Dosage: 80 MG, UNK
     Route: 058
  23. LACTULOSE. [Concomitant]
     Active Substance: LACTULOSE
     Dosage: 10 MG, UNK
  24. BACITRACIN. [Concomitant]
     Active Substance: BACITRACIN
     Dosage: 50000 UNIT, UNK
  25. PANTOPRAZOLE [Concomitant]
     Active Substance: PANTOPRAZOLE SODIUM
     Dosage: 40 MG, UNK
     Route: 048

REACTIONS (19)
  - Depressed level of consciousness [Unknown]
  - Feeling abnormal [Recovering/Resolving]
  - Metastases to lung [Unknown]
  - Metastases to central nervous system [Recovering/Resolving]
  - Encephalopathy [Recovering/Resolving]
  - Metastases to spine [Unknown]
  - Disease progression [Fatal]
  - Ascites [Unknown]
  - Metastases to liver [Unknown]
  - Hydrocephalus [Recovering/Resolving]
  - Hepatic function abnormal [Unknown]
  - Mental status changes [Recovering/Resolving]
  - Metastases to chest wall [Unknown]
  - Vomiting [Recovering/Resolving]
  - Slow response to stimuli [Recovering/Resolving]
  - Balance disorder [Recovering/Resolving]
  - Renal failure [Unknown]
  - Pathological fracture [Unknown]
  - Nausea [Recovering/Resolving]

NARRATIVE: CASE EVENT DATE: 20150830
